FAERS Safety Report 20574535 (Version 3)
Quarter: 2022Q2

REPORT INFORMATION
  Report Type: Other
  Country: KW (occurrence: None)
  Receive Date: 20220309
  Receipt Date: 20220606
  Transmission Date: 20220721
  Serious: No
  Sender: FDA-Public Use
  Company Number: KW-ROCHE-3045749

PATIENT
  Age: 38 Year
  Sex: Male
  Weight: 73 kg

DRUGS (1)
  1. OCRELIZUMAB [Suspect]
     Active Substance: OCRELIZUMAB
     Indication: Relapsing-remitting multiple sclerosis
     Route: 042
     Dates: start: 20200728

REACTIONS (1)
  - SARS-CoV-2 test positive [Recovered/Resolved with Sequelae]

NARRATIVE: CASE EVENT DATE: 20220214
